FAERS Safety Report 6437102-4 (Version None)
Quarter: 2009Q4

REPORT INFORMATION
  Report Type: 
  Country: None (occurrence: None)
  Receive Date: 20091112
  Receipt Date: 20091030
  Transmission Date: 20100525
  Serious: Yes (Hospitalization)
  Sender: FDA-Public Use
  Company Number: PHHY2009JP48020

PATIENT
  Age: 56 Year
  Sex: Female

DRUGS (4)
  1. LAMISIL [Suspect]
     Dosage: 125 MG DAILY
     Route: 048
     Dates: start: 20090401, end: 20091019
  2. PREDONINE [Concomitant]
     Dosage: UNK
     Route: 048
  3. BAKTAR [Concomitant]
     Dosage: UNK
     Route: 048
  4. BENET [Concomitant]
     Dosage: UNK
     Route: 048

REACTIONS (1)
  - INTERSTITIAL LUNG DISEASE [None]
